FAERS Safety Report 12515304 (Version 1)
Quarter: 2016Q2

REPORT INFORMATION
  Report Type: Spontaneous
  Country: US (occurrence: US)
  Receive Date: 20160630
  Receipt Date: 20160630
  Transmission Date: 20160815
  Serious: Yes (Hospitalization)
  Sender: FDA-Public Use
  Company Number: US-BAUSCH-BL-2016-015077

PATIENT
  Sex: Female

DRUGS (1)
  1. XENAZINE [Suspect]
     Active Substance: TETRABENAZINE
     Indication: DYSTONIA
     Route: 048
     Dates: start: 20140919

REACTIONS (5)
  - Parkinson^s disease [Unknown]
  - Syncope [Unknown]
  - Off label use [Unknown]
  - Dehydration [Unknown]
  - Pneumonia aspiration [Unknown]
